FAERS Safety Report 13711453 (Version 1)
Quarter: 2017Q3

REPORT INFORMATION
  Report Type: Spontaneous
  Country: US (occurrence: US)
  Receive Date: 20170701
  Receipt Date: 20170701
  Transmission Date: 20171127
  Serious: Yes (Hospitalization, Disabling, Other)
  Sender: FDA-Public Use
  Company Number: None

PATIENT
  Age: 35 Year
  Sex: Male
  Weight: 77.4 kg

DRUGS (1)
  1. KLONOPIN [Suspect]
     Active Substance: CLONAZEPAM
     Indication: ANXIETY
     Dosage: ?          OTHER STRENGTH:MG;QUANTITY:2 TABLET(S);?
     Route: 048

REACTIONS (13)
  - Withdrawal syndrome [None]
  - Muscle twitching [None]
  - Suicide attempt [None]
  - Intentional self-injury [None]
  - Delusion [None]
  - Hyperacusis [None]
  - Weight decreased [None]
  - Feeling abnormal [None]
  - Nightmare [None]
  - Hand fracture [None]
  - Drowning [None]
  - Psychotic disorder [None]
  - Fall [None]

NARRATIVE: CASE EVENT DATE: 20160506
